FAERS Safety Report 14727040 (Version 1)
Quarter: 2018Q2

REPORT INFORMATION
  Report Type: Spontaneous
  Country: US (occurrence: US)
  Receive Date: 20180406
  Receipt Date: 20180406
  Transmission Date: 20180711
  Serious: No
  Sender: FDA-Public Use
  Company Number: US-CELGENEUS-USA-20180400750

PATIENT
  Sex: Female

DRUGS (2)
  1. OTEZLA [Suspect]
     Active Substance: APREMILAST
     Indication: PSORIASIS
     Route: 048
  2. OTEZLA [Suspect]
     Active Substance: APREMILAST
     Dosage: 1 TABLET BID 3 TIMES A WEEK THEN 1 TAB DAILY FOR THE REST OF THE DAYS
     Route: 048

REACTIONS (3)
  - Nausea [Recovered/Resolved with Sequelae]
  - Psoriasis [Unknown]
  - Vomiting [Unknown]
